FAERS Safety Report 8776382 (Version 2)
Quarter: 2012Q4

REPORT INFORMATION
  Report Type: 
  Country: US (occurrence: US)
  Receive Date: 20120910
  Receipt Date: 20121205
  Transmission Date: 20130627
  Serious: Yes (Hospitalization)
  Sender: FDA-Public Use
  Company Number: US-GILEAD-2012-0060854

PATIENT
  Sex: Female

DRUGS (4)
  1. LETAIRIS [Suspect]
     Indication: PULMONARY HYPERTENSION
     Dosage: 5 mg, UNK
     Route: 048
     Dates: start: 20100723
  2. LETAIRIS [Suspect]
     Indication: EISENMENGER^S SYNDROME
  3. LETAIRIS [Suspect]
     Indication: HEART DISEASE CONGENITAL
  4. ATIVAN [Concomitant]

REACTIONS (2)
  - Psychotherapy [Unknown]
  - Therapy regimen changed [Unknown]
